FAERS Safety Report 21678384 (Version 1)
Quarter: 2022Q4

REPORT INFORMATION
  Report Type: Spontaneous
  Country: NL (occurrence: NL)
  Receive Date: 20221203
  Receipt Date: 20221203
  Transmission Date: 20230113
  Serious: Yes (Life-Threatening, Other)
  Sender: FDA-Public Use
  Company Number: None

PATIENT
  Sex: Male
  Weight: 56.7 kg

DRUGS (6)
  1. ENALAPRIL [Suspect]
     Active Substance: ENALAPRIL
     Indication: Hypertension
     Dosage: 10 MG (MILLIGRAM),STRENGTH : 10MG / BRAND NAME NOT SPECIFIED, ASKU 1 DF
     Route: 065
     Dates: start: 20220318, end: 20221108
  2. PANTOPRAZOLE [Concomitant]
     Active Substance: PANTOPRAZOLE
     Indication: Product used for unknown indication
     Dosage: 20 MG (MILLIGRAM), PANTOPRAZOLE TABLET MSR 20MG / BRAND NAME NOT SPECIFIED, THERAPY START DATE : ASK
  3. ACETAMINOPHEN [Concomitant]
     Active Substance: ACETAMINOPHEN
     Indication: Product used for unknown indication
     Dosage: 500 MG (MILLIGRAM), STRENGTH : 500MG / BRAND NAME NOT SPECIFIED, THERAPY START DATE : ASKU , THERAPY
  4. PRAMIPEXOLE [Concomitant]
     Active Substance: PRAMIPEXOLE
     Indication: Product used for unknown indication
     Dosage: TABLET, 0,125 MG (MILLIGRAM), STRENGTH : 0,125MG (0,088MG BASE) / BRAND NAME NOT SPECIFIED, THERAPY
  5. TIMOLOL MALEATE [Concomitant]
     Active Substance: TIMOLOL MALEATE
     Indication: Product used for unknown indication
     Dosage: 1 MG/G (MILLIGRAM PER GRAM), STRENGTH : 1MG/G TUBE 0.4G, THERAPY START DATE : ASKU , THERAPY END DA
  6. NIFEDIPINE [Concomitant]
     Active Substance: NIFEDIPINE
     Indication: Product used for unknown indication
     Dosage: 20 MG (MILLIGRAM), NIFEDIPINE TABLET MGA 20MG / BRAND NAME NOT SPECIFIED, THERAPY START DATE : ASKU

REACTIONS (1)
  - Angioedema [Not Recovered/Not Resolved]
